FAERS Safety Report 4514928-5 (Version None)
Quarter: 2004Q4

REPORT INFORMATION
  Report Type: 
  Country: None (occurrence: None)
  Receive Date: 20041201
  Receipt Date: 20041119
  Transmission Date: 20050328
  Serious: Yes (Other)
  Sender: FDA-Public Use
  Company Number: JP-BRISTOL-MYERS SQUIBB COMPANY-12777884

PATIENT
  Age: 23 Year
  Sex: Male

DRUGS (1)
  1. GATIFLO TABS 100 MG [Suspect]
     Indication: URETHRITIS CHLAMYDIAL
     Route: 048
     Dates: start: 20041111, end: 20041118

REACTIONS (3)
  - HYPERVENTILATION [None]
  - HYPOAESTHESIA [None]
  - PALPITATIONS [None]
